FAERS Safety Report 5369564-8 (Version None)
Quarter: 2007Q2

REPORT INFORMATION
  Report Type: 
  Country: None (occurrence: None)
  Receive Date: 20070620
  Receipt Date: 20070607
  Transmission Date: 20071010
  Serious: Yes (Hospitalization)
  Sender: FDA-Public Use
  Company Number: TPA2007A01027

PATIENT
  Age: 39 Year
  Sex: Female

DRUGS (1)
  1. ROZEREM [Suspect]
     Indication: INSOMNIA
     Dosage: 8 MG, QHS AS REQUIRED, PER ORAL
     Route: 048

REACTIONS (3)
  - INTENTIONAL SELF-INJURY [None]
  - JOINT INJURY [None]
  - OVERDOSE [None]
